FAERS Safety Report 6589889-8 (Version None)
Quarter: 2010Q1

REPORT INFORMATION
  Report Type: 
  Country: None (occurrence: None)
  Receive Date: 20100212
  Receipt Date: 20100127
  Transmission Date: 20100710
  Serious: Yes (Hospitalization)
  Sender: FDA-Public Use
  Company Number: 2010-0311

PATIENT
  Sex: Female

DRUGS (2)
  1. APOKYN [Suspect]
     Indication: PARKINSON'S DISEASE
     Dosage: 0.2 ML ESCALATING UP TO OPTIMAL DOSE OF 0.4 ML, PARENTERAL, 0.4 ML, PARENTERAL
     Route: 051
     Dates: start: 20100107
  2. APOKYN [Suspect]
     Indication: PARKINSON'S DISEASE
     Dosage: 0.2 ML ESCALATING UP TO OPTIMAL DOSE OF 0.4 ML, PARENTERAL, 0.4 ML, PARENTERAL
     Route: 051
     Dates: start: 20100107

REACTIONS (2)
  - INJECTION SITE HAEMATOMA [None]
  - PULMONARY EMBOLISM [None]
